FAERS Safety Report 5086413-6 (Version None)
Quarter: 2006Q3

REPORT INFORMATION
  Report Type: 
  Country: None (occurrence: None)
  Receive Date: 20060823
  Receipt Date: 20060810
  Transmission Date: 20061208
  Serious: Yes (Other)
  Sender: FDA-Public Use
  Company Number: PHBS2006PL12192

PATIENT
  Age: 56 Year
  Sex: Male

DRUGS (7)
  1. CYCLOPHOSPHAMIDE W/VINCRISTINE/PREDNISONE [Concomitant]
     Route: 065
     Dates: start: 19990101, end: 20000101
  2. ADRIAMYCINE + VINCRISTINE [Concomitant]
     Route: 065
     Dates: start: 19990101, end: 20000101
  3. CARMUSTINE [Concomitant]
     Route: 065
     Dates: start: 19990101, end: 20000101
  4. PREDNISONE [Concomitant]
     Dates: start: 19990101, end: 20000101
  5. IRRADIATION [Concomitant]
     Route: 065
  6. ZOLEDRONIC ACID [Suspect]
     Indication: MULTIPLE MYELOMA
     Dosage: 8 MG, QMO
     Route: 042
  7. MELPHALAN [Concomitant]
     Route: 065
     Dates: end: 20050901

REACTIONS (17)
  - BACTERIAL INFECTION [None]
  - BONE DISORDER [None]
  - DENTAL CARIES [None]
  - DENTURE WEARER [None]
  - ESCHERICHIA INFECTION [None]
  - FISTULA [None]
  - FRACTURE [None]
  - GINGIVAL DISORDER [None]
  - IMPAIRED HEALING [None]
  - MORGANELLA INFECTION [None]
  - OSTEOLYSIS [None]
  - OSTEONECROSIS [None]
  - SEQUESTRECTOMY [None]
  - STAPHYLOCOCCAL INFECTION [None]
  - STREPTOCOCCAL INFECTION [None]
  - TOOTH EXTRACTION [None]
  - WOUND DEBRIDEMENT [None]
